FAERS Safety Report 6294806-4 (Version None)
Quarter: 2009Q3

REPORT INFORMATION
  Report Type: 
  Country: None (occurrence: None)
  Receive Date: 20090803
  Receipt Date: 20090729
  Transmission Date: 20100115
  Serious: Yes (Hospitalization)
  Sender: FDA-Public Use
  Company Number: GB-WYE-G04146509

PATIENT
  Sex: Male
  Weight: 96.5 kg

DRUGS (8)
  1. SIROLIMUS [Suspect]
     Dosage: 2MG FREQUENCY UNKNOWN
     Route: 048
     Dates: start: 20090218
  2. BECONASE [Concomitant]
     Dosage: UNKNOWN
  3. PROBENECID [Concomitant]
     Dosage: UNKNOWN
  4. SOTALOL HCL [Concomitant]
     Dosage: UNKNOWN
  5. WARFARIN SODIUM [Concomitant]
     Dosage: UNKNOWN
  6. DOXAZOSIN MESYLATE [Concomitant]
     Dosage: UNKNOWN
  7. DILTIAZEM [Concomitant]
     Dosage: UNKNOWN
  8. PREDNISOLONE [Concomitant]
     Dosage: UNKNOWN

REACTIONS (2)
  - NECROSIS [None]
  - SKIN ULCER [None]
